FAERS Safety Report 6897436-6 (Version None)
Quarter: 2010Q3

REPORT INFORMATION
  Report Type: 
  Country: None (occurrence: None)
  Receive Date: 20100802
  Receipt Date: 20070509
  Transmission Date: 20110219
  Serious: No
  Sender: FDA-Public Use
  Company Number: US-PFIZER INC-2007039105

PATIENT
  Sex: Male
  Weight: 118.18 kg

DRUGS (5)
  1. LYRICA [Suspect]
     Indication: NEUROPATHY PERIPHERAL
     Dates: start: 20070426
  2. LYRICA [Suspect]
     Indication: CRANIAL NERVE DISORDER
  3. PLAQUENIL [Concomitant]
  4. WELLBUTRIN [Concomitant]
  5. FISH OIL [Concomitant]

REACTIONS (5)
  - DIZZINESS [None]
  - FEELING ABNORMAL [None]
  - FEELING DRUNK [None]
  - INFLUENZA LIKE ILLNESS [None]
  - SOMNOLENCE [None]
